FAERS Safety Report 13801585 (Version 1)
Quarter: 2017Q3

REPORT INFORMATION
  Report Type: Spontaneous
  Country: US (occurrence: US)
  Receive Date: 20170727
  Receipt Date: 20170727
  Transmission Date: 20171127
  Serious: No
  Sender: FDA-Public Use
  Company Number: US-GLAXOSMITHKLINE-US2017115585

PATIENT
  Age: 52 Year
  Sex: Female

DRUGS (4)
  1. OMEGA-3-ACID ETHYL ESTERS CAPSULE [Suspect]
     Active Substance: OMEGA-3-ACID ETHYL ESTERS
     Indication: BLOOD TRIGLYCERIDES INCREASED
     Dosage: UNK
     Dates: start: 201606, end: 2016
  2. LOVAZA [Suspect]
     Active Substance: OMEGA-3-ACID ETHYL ESTERS
     Indication: BLOOD TRIGLYCERIDES INCREASED
     Dosage: 1 G, BID
     Route: 048
     Dates: start: 2009, end: 201606
  3. LOVAZA [Suspect]
     Active Substance: OMEGA-3-ACID ETHYL ESTERS
     Dosage: 1 G, BID
     Dates: start: 2016, end: 201707
  4. ASPIRIN. [Concomitant]
     Active Substance: ASPIRIN

REACTIONS (6)
  - Chest discomfort [Recovered/Resolved]
  - Muscular weakness [Unknown]
  - Extrasystoles [Recovered/Resolved]
  - Hypertension [Recovering/Resolving]
  - Product substitution issue [Unknown]
  - Asthenia [Unknown]

NARRATIVE: CASE EVENT DATE: 201606
